FAERS Safety Report 20512983 (Version 1)
Quarter: 2022Q1

REPORT INFORMATION
  Report Type: Spontaneous
  Country: US (occurrence: US)
  Receive Date: 20220224
  Receipt Date: 20220224
  Transmission Date: 20220423
  Serious: No
  Sender: FDA-Public Use
  Company Number: US-AMNEAL PHARMACEUTICALS-2021-AMRX-00258

PATIENT
  Age: 73 Year
  Sex: Female

DRUGS (3)
  1. RYTARY [Suspect]
     Active Substance: CARBIDOPA\LEVODOPA
     Indication: Parkinson^s disease
     Dosage: 36.25/145MG, 3 CAPSULES, TID
     Route: 048
     Dates: start: 20210125, end: 20210210
  2. RYTARY [Suspect]
     Active Substance: CARBIDOPA\LEVODOPA
     Dosage: 48.75/195MG, 3 CAPSULES, 3 /DAY
     Route: 048
     Dates: start: 20210210
  3. RYTARY [Suspect]
     Active Substance: CARBIDOPA\LEVODOPA
     Dosage: 10 CAPSULES, QD, 4 IN MORNING, 4 AT 2PM AND 2 AT 7PM
     Route: 048
     Dates: start: 20210226

REACTIONS (2)
  - Somnolence [Unknown]
  - Product dispensing error [Unknown]

NARRATIVE: CASE EVENT DATE: 20210101
